FAERS Safety Report 17943309 (Version 6)
Quarter: 2024Q1

REPORT INFORMATION
  Report Type: Spontaneous
  Country: US (occurrence: US)
  Receive Date: 20200625
  Receipt Date: 20240227
  Transmission Date: 20240409
  Serious: No
  Sender: FDA-Public Use
  Company Number: US-PFIZER INC-2020243710

PATIENT
  Age: 66 Year
  Sex: Female
  Weight: 77.11 kg

DRUGS (8)
  1. BOSULIF [Suspect]
     Active Substance: BOSUTINIB MONOHYDRATE
     Indication: Chronic myeloid leukaemia
     Dosage: 200 MG (OVER A 2 WEEK PERIOD/ 1 WEEK OR 10 DAYS)
     Route: 048
     Dates: start: 2020
  2. BOSULIF [Suspect]
     Active Substance: BOSUTINIB MONOHYDRATE
     Dosage: 3 TABLETS (300 MG TOTAL) BY MOUTH 1 (ONE) TIME EACH DAY WITH FOOD, SWALLOW WHOLE.
     Route: 048
     Dates: start: 2020
  3. BOSULIF [Suspect]
     Active Substance: BOSUTINIB MONOHYDRATE
     Dosage: 400 MG, DAILY WITH BREAKFAST
     Route: 048
     Dates: start: 2020
  4. BOSULIF [Suspect]
     Active Substance: BOSUTINIB MONOHYDRATE
     Dosage: 400 MG, EVERY OTHER DAY
     Route: 048
     Dates: start: 20200619
  5. BOSULIF [Suspect]
     Active Substance: BOSUTINIB MONOHYDRATE
     Dosage: 100 MG
  6. BOSULIF [Suspect]
     Active Substance: BOSUTINIB MONOHYDRATE
     Dosage: 100 MG
     Dates: start: 20230127
  7. BOSULIF [Suspect]
     Active Substance: BOSUTINIB MONOHYDRATE
     Dosage: TAKE 3 TABLETS (300 MG TOTAL) 1 TIME EACH DAY WITH FOOD, SWALLOW WHOLE
     Route: 048
  8. ZITHROMAX [Concomitant]
     Active Substance: AZITHROMYCIN DIHYDRATE
     Dosage: 500 MG, 1X/DAY
     Route: 048

REACTIONS (4)
  - Muscle spasms [Unknown]
  - Rash erythematous [Not Recovered/Not Resolved]
  - Rash pruritic [Not Recovered/Not Resolved]
  - Off label use [Unknown]

NARRATIVE: CASE EVENT DATE: 20200602
